FAERS Safety Report 25449003 (Version 1)
Quarter: 2025Q2

REPORT INFORMATION
  Report Type: Report from Study
  Country: CA (occurrence: CA)
  Receive Date: 20250618
  Receipt Date: 20250618
  Transmission Date: 20250716
  Serious: Yes (Death, Other)
  Sender: TOLMAR
  Company Number: TLM-2025-01527 (2)

PATIENT
  Age: 63 Year
  Sex: Male

DRUGS (14)
  1. ELIGARD [Suspect]
     Active Substance: LEUPROLIDE ACETATE
     Indication: Prostate cancer
     Dosage: 22.5 MG, EVERY 3 MONTHS
     Route: 058
     Dates: start: 20230117
  2. ELIGARD [Suspect]
     Active Substance: LEUPROLIDE ACETATE
     Dosage: 22.5 MG, EVERY 3 MONTHS
     Route: 058
     Dates: start: 20250225, end: 20250521
  3. ELIGARD [Suspect]
     Active Substance: LEUPROLIDE ACETATE
     Indication: Prostate cancer
  4. ERTAPENEM [Concomitant]
     Active Substance: ERTAPENEM
     Indication: Abdominal abscess
     Dosage: 1 GM DAILY
     Route: 042
  5. ERTAPENEM [Concomitant]
     Active Substance: ERTAPENEM
     Dosage: 1 GM DAILY
     Route: 042
  6. ERTAPENEM [Concomitant]
     Active Substance: ERTAPENEM
     Route: 042
  7. RIVAROXABAN [Concomitant]
     Active Substance: RIVAROXABAN
     Indication: Embolism
  8. GRANISETRON [Concomitant]
     Active Substance: GRANISETRON
     Indication: Product used for unknown indication
     Route: 048
  9. GRANISETRON [Concomitant]
     Active Substance: GRANISETRON
     Route: 048
  10. GLYCOPYRROLATE [Concomitant]
     Active Substance: GLYCOPYRROLATE
     Indication: Product used for unknown indication
     Route: 058
  11. GLYCOPYRROLATE [Concomitant]
     Active Substance: GLYCOPYRROLATE
     Route: 058
  12. STELARA [Concomitant]
     Active Substance: USTEKINUMAB
     Indication: Crohn^s disease
  13. ENZALUTAMIDE [Concomitant]
     Active Substance: ENZALUTAMIDE
     Indication: Product used for unknown indication
  14. SKYRIZI [Concomitant]
     Active Substance: RISANKIZUMAB-RZAA
     Indication: Crohn^s disease

REACTIONS (5)
  - Death [Fatal]
  - Terminal state [Unknown]
  - Abdominal pain upper [Unknown]
  - Therapy cessation [Recovered/Resolved]
  - Pain in extremity [Unknown]
